FAERS Safety Report 17988476 (Version 1)
Quarter: 2020Q3

REPORT INFORMATION
  Report Type: Spontaneous
  Country: US (occurrence: US)
  Receive Date: 20200707
  Receipt Date: 20200707
  Transmission Date: 20201103
  Serious: Yes (Other)
  Sender: FDA-Public Use
  Company Number: US-ASTELLAS-2020US021763

PATIENT
  Age: 54 Year
  Sex: Female

DRUGS (2)
  1. TACROLIMUS. [Suspect]
     Active Substance: TACROLIMUS
     Indication: RENAL TRANSPLANT
     Dosage: 3 MG (3 CAPSULES IN THE MORNING, 3 CAPSULES IN THE EVENING), TWICE DAILY
     Route: 048
     Dates: start: 2001
  2. TACROLIMUS. [Suspect]
     Active Substance: TACROLIMUS
     Indication: PANCREAS TRANSPLANT

REACTIONS (4)
  - Renal impairment [Unknown]
  - Product use in unapproved indication [Unknown]
  - Renal neoplasm [Unknown]
  - Bladder cancer [Unknown]
